FAERS Safety Report 9068430 (Version 2)
Quarter: 2013Q2

REPORT INFORMATION
  Report Type: Report from Study
  Country: US (occurrence: US)
  Receive Date: 20130128
  Receipt Date: 20130515
  Transmission Date: 20140414
  Serious: Yes (Life-Threatening)
  Sender: FDA-Public Use
  Company Number: PHHO2013US001517

PATIENT
  Age: 45 Year
  Sex: Male
  Weight: 88 kg

DRUGS (4)
  1. ATENOLOL [Suspect]
     Indication: HYPERTENSION
     Dosage: 25 MG, QD
     Route: 048
  2. BLINDED NO TREATMENT RECEIVED [Suspect]
     Indication: SCHIZOPHRENIA
     Dosage: CODE NOT BROKEN
     Dates: start: 20121219
  3. BLINDED PLACEBO [Suspect]
     Indication: SCHIZOPHRENIA
     Dosage: CODE NOT BROKEN
     Dates: start: 20121219
  4. BLINDED ZOMARIL [Suspect]
     Indication: SCHIZOPHRENIA
     Dosage: CODE NOT BROKEN
     Dates: start: 20121219

REACTIONS (1)
  - Hypernatraemia [Recovered/Resolved]
